FAERS Safety Report 19485844 (Version 1)
Quarter: 2021Q3

REPORT INFORMATION
  Report Type: Spontaneous
  Country: JP (occurrence: JP)
  Receive Date: 20210702
  Receipt Date: 20210702
  Transmission Date: 20211014
  Serious: Yes (Hospitalization, Other)
  Sender: FDA-Public Use
  Company Number: JP-GLAXOSMITHKLINE-JP2021JPN139895

PATIENT
  Age: 32 Year
  Sex: Female

DRUGS (13)
  1. ZANTAC [Suspect]
     Active Substance: RANITIDINE HYDROCHLORIDE
     Dosage: 75 MG, 1D
     Route: 048
  2. METHYLDOPA HYDRATE [Concomitant]
     Active Substance: METHYLDOPA
     Dosage: 1000 MG, 1D
     Route: 048
  3. PREDNISOLONE SODIUM SUCCINATE [Concomitant]
     Active Substance: PREDNISOLONE SODIUM SUCCINATE
     Dosage: 7.5 MG, 1D
  4. TACROLIMUS HYDRATE [Concomitant]
     Active Substance: TACROLIMUS
     Dosage: 3 MG, 1D
  5. ASPIRIN. [Concomitant]
     Active Substance: ASPIRIN
     Dosage: 100 MG, 1D
  6. PREDNISOLONE SODIUM SUCCINATE [Concomitant]
     Active Substance: PREDNISOLONE SODIUM SUCCINATE
     Dosage: 12.5 MG, 1D
  7. PREDNISOLONE SODIUM SUCCINATE [Concomitant]
     Active Substance: PREDNISOLONE SODIUM SUCCINATE
     Dosage: 10 MG, 1D
  8. PREDNISOLONE SODIUM SUCCINATE [Concomitant]
     Active Substance: PREDNISOLONE SODIUM SUCCINATE
     Dosage: 20 MG, 1D
  9. PREDNISOLONE SODIUM SUCCINATE [Concomitant]
     Active Substance: PREDNISOLONE SODIUM SUCCINATE
     Dosage: 10 MG, 1D
  10. OLMESARTAN MEDOXOMIL. [Concomitant]
     Active Substance: OLMESARTAN MEDOXOMIL
     Dosage: 10 MG, 1D
  11. HEPARIN CALCIUM [Concomitant]
     Active Substance: HEPARIN CALCIUM
     Indication: ANTIPHOSPHOLIPID SYNDROME
     Dosage: 10000 U/DAY
     Route: 058
  12. METHYLDOPA HYDRATE [Concomitant]
     Active Substance: METHYLDOPA
     Indication: HYPERTENSION
     Dosage: 500 MG, 1D
     Route: 048
  13. METHYLDOPA HYDRATE [Concomitant]
     Active Substance: METHYLDOPA
     Dosage: 750 MG, 1D
     Route: 048

REACTIONS (7)
  - Hepatic function abnormal [Unknown]
  - Proteinuria [Unknown]
  - HELLP syndrome [Unknown]
  - Blood pressure increased [Unknown]
  - Abdominal pain upper [Recovering/Resolving]
  - Exposure during pregnancy [Unknown]
  - Abortion induced [Unknown]
